FAERS Safety Report 18716413 (Version 1)
Quarter: 2021Q1

REPORT INFORMATION
  Report Type: Spontaneous
  Country: PR (occurrence: PR)
  Receive Date: 20210108
  Receipt Date: 20210108
  Transmission Date: 20210419
  Serious: Yes (Hospitalization)
  Sender: FDA-Public Use
  Company Number: PR-STRIDES ARCOLAB LIMITED-2021SP000184

PATIENT
  Age: 36 Year
  Sex: Male

DRUGS (1)
  1. ZOLPIDEM [Suspect]
     Active Substance: ZOLPIDEM TARTRATE
     Indication: PRODUCT USED FOR UNKNOWN INDICATION
     Dosage: UNK, 90 PILLS OF ZOLPIDEM
     Route: 048

REACTIONS (12)
  - Conjunctival haemorrhage [Recovered/Resolved]
  - Renal failure [Recovered/Resolved]
  - Suicide attempt [Unknown]
  - Rhabdomyolysis [Recovered/Resolved]
  - Incoherent [Recovered/Resolved]
  - Intentional overdose [Unknown]
  - Hyperhidrosis [Recovered/Resolved]
  - Metabolic acidosis [Recovered/Resolved]
  - Seizure [Recovered/Resolved]
  - Petechiae [Recovered/Resolved]
  - Oliguria [Recovered/Resolved]
  - Disorientation [Recovered/Resolved]
